FAERS Safety Report 4581859-4 (Version None)
Quarter: 2005Q1

REPORT INFORMATION
  Report Type: 
  Country: None (occurrence: None)
  Receive Date: 20050214
  Receipt Date: 20040324
  Transmission Date: 20050727
  Serious: No
  Sender: FDA-Public Use
  Company Number: US-GLAXOSMITHKLINE-A0504302A

PATIENT
  Sex: Female

DRUGS (2)
  1. LAMICTAL [Suspect]
     Indication: BIPOLAR DISORDER
     Route: 048
     Dates: start: 20040318, end: 20040319
  2. PAXIL [Concomitant]

REACTIONS (6)
  - DISTURBANCE IN ATTENTION [None]
  - HOT FLUSH [None]
  - MUSCLE SPASMS [None]
  - MUSCULAR WEAKNESS [None]
  - PRURITUS [None]
  - TONGUE DISORDER [None]
